FAERS Safety Report 4307201-1 (Version None)
Quarter: 2004Q1

REPORT INFORMATION
  Report Type: 
  Country: None (occurrence: None)
  Receive Date: 20040225
  Receipt Date: 20040220
  Transmission Date: 20041129
  Serious: Yes (Death, Hospitalization)
  Sender: FDA-Public Use
  Company Number: 200410047BYL

PATIENT
  Age: 73 Year
  Sex: Male
  Weight: 52 kg

DRUGS (10)
  1. CIPROFLOXACIN [Suspect]
     Dates: start: 20030409, end: 20030422
  2. TAKESULIN (CEFSULODIN SODIUM) [Suspect]
     Indication: PSEUDOMONAS INFECTION
     Dosage: 2 G, TOTAL DAILY, INTRAVENOUS DRIP
     Route: 041
     Dates: start: 20030414, end: 20030427
  3. ERYTHROCIN [Suspect]
     Indication: PSEUDOMONAS INFECTION
     Dosage: 1500 MG, TOTAL DAILY, INTRAVENOUS DRIP
     Route: 041
     Dates: start: 20030420, end: 20030430
  4. DIFLUCAN [Suspect]
     Indication: FUNGAL INFECTION
     Dosage: 200 MG, TOTAL DAILY, INTRAVENOUS DRIP
     Route: 041
     Dates: start: 20030409, end: 20030412
  5. ELASPOL (SIVELESTAT) [Suspect]
     Dosage: 300 MG, TOTAL DAILY,  INTRAVENOUS DRIP
     Route: 041
     Dates: start: 20030417, end: 20030426
  6. IMMUNE GLOBULIN (HUMAN) [Suspect]
     Dosage: 5 G, TOTAL DAILY, INTRAVENOUS DRIP
     Route: 041
  7. BIKLIN [Concomitant]
  8. BUMINATE [Concomitant]
  9. PENTICILLIN [Concomitant]
  10. MODACIN [Concomitant]

REACTIONS (8)
  - C-REACTIVE PROTEIN INCREASED [None]
  - CONDITION AGGRAVATED [None]
  - FUNGAL INFECTION [None]
  - HEPATIC FUNCTION ABNORMAL [None]
  - MULTI-ORGAN FAILURE [None]
  - PNEUMONIA [None]
  - PSEUDOMONAS INFECTION [None]
  - WHITE BLOOD CELL COUNT INCREASED [None]
